FAERS Safety Report 4492703-8 (Version None)
Quarter: 2004Q4

REPORT INFORMATION
  Report Type: 
  Country: None (occurrence: None)
  Receive Date: 20041102
  Receipt Date: 20041102
  Transmission Date: 20050328
  Serious: Yes (Hospitalization)
  Sender: FDA-Public Use
  Company Number: None

PATIENT
  Age: 78 Year
  Sex: Male

DRUGS (6)
  1. CALAN [Suspect]
     Indication: HYPERTENSION
  2. CARDURA [Suspect]
  3. DIOVAN [Suspect]
  4. HYDROCHLOROTHIAZIDE [Suspect]
  5. TAMSULOSIN [Concomitant]
  6. CELECOXIB [Concomitant]

REACTIONS (1)
  - SYNCOPE [None]
